FAERS Safety Report 8480912-2 (Version None)
Quarter: 2012Q3

REPORT INFORMATION
  Report Type: 
  Country: None (occurrence: None)
  Receive Date: 20120702
  Receipt Date: 20120620
  Transmission Date: 20120928
  Serious: Yes (Hospitalization)
  Sender: FDA-Public Use
  Company Number: US-ELI_LILLY_AND_COMPANY-US200910002126

PATIENT
  Sex: Female

DRUGS (11)
  1. FORTEO [Suspect]
     Dosage: 20 UG, DAILY (1/D)
     Dates: start: 20090801
  2. FORTEO [Suspect]
     Dosage: 20 UG, QD
     Dates: start: 20090801, end: 20110101
  3. FORTEO [Suspect]
     Dosage: 20 UG, QD
     Dates: start: 20090801
  4. FORTEO [Suspect]
     Dosage: 20 UG, QD
     Dates: start: 20090801
  5. FORTEO [Suspect]
     Dosage: 20 UG, DAILY (1/D)
     Dates: start: 20090801
  6. ASPIRIN [Concomitant]
     Dosage: UNK, QD
  7. FORTEO [Suspect]
     Dosage: 20 UG, DAILY (1/D)
     Dates: start: 20090801
  8. LEVOTHYROXINE SODIUM [Concomitant]
     Dosage: 50 MG, QD
  9. FOSAMAX [Concomitant]
     Dosage: UNK, WEEKLY (1/W)
  10. VITAMIN TAB [Concomitant]
  11. FORTEO [Suspect]
     Indication: OSTEOPOROSIS
     Dosage: 20 UG, DAILY (1/D)
     Dates: start: 20090801

REACTIONS (4)
  - FALL [None]
  - THYROID DISORDER [None]
  - HIP FRACTURE [None]
  - CONSTIPATION [None]
